FAERS Safety Report 19134472 (Version 3)
Quarter: 2021Q2

REPORT INFORMATION
  Report Type: Report from Study
  Country: DK (occurrence: DK)
  Receive Date: 20210414
  Receipt Date: 20210429
  Transmission Date: 20210717
  Serious: Yes (Hospitalization)
  Sender: FDA-Public Use
  Company Number: DK-PFIZER INC-2021386486

PATIENT
  Age: 79 Year
  Sex: Female
  Weight: 87.9 kg

DRUGS (28)
  1. IMADRAX [Concomitant]
     Active Substance: AMOXICILLIN
     Dosage: UNK
     Dates: start: 20210226, end: 20210302
  2. BENZYLPENICILLIN [Concomitant]
     Active Substance: PENICILLIN G
     Dosage: UNK
     Dates: start: 20210219, end: 20210226
  3. GANGIDEN [Concomitant]
     Dosage: UNK
     Dates: start: 20210315
  4. SULFAMETHOXAZOLE+TRIMETHOPRIM [Concomitant]
     Active Substance: SULFAMETHOXAZOLE\TRIMETHOPRIM
     Dosage: UNK
     Dates: start: 20210308
  5. SIFROL [Concomitant]
     Active Substance: PRAMIPEXOLE
     Dosage: UNK
     Dates: start: 20120823
  6. PREDNISOLON [PREDNISOLONE] [Concomitant]
     Active Substance: PREDNISOLONE
     Dosage: 100 MG
     Route: 048
     Dates: start: 20210323, end: 20210325
  7. ALLOPURINOL. [Concomitant]
     Active Substance: ALLOPURINOL
     Dosage: UNK
     Dates: start: 20210308
  8. CLOXACILLIN [Concomitant]
     Active Substance: CLOXACILLIN
     Dosage: UNK
     Dates: start: 20210220, end: 20210226
  9. DICILLIN [DICLOXACILLIN SODIUM MONOHYDRATE] [Concomitant]
     Dosage: UNK
     Dates: start: 20210226, end: 20210301
  10. EPCORITAMAB. [Suspect]
     Active Substance: EPCORITAMAB
     Dosage: FULL DOSE: 24 MG, WEEKLY, CONCENTRATE FOR SOLUTION FOR INJECTION
     Route: 058
     Dates: start: 20210322
  11. TAVEGYL [Concomitant]
     Active Substance: CLEMASTINE FUMARATE
     Dosage: 1 MG
     Route: 048
     Dates: start: 20210322, end: 20210322
  12. SOLU?MEDROL [Concomitant]
     Active Substance: METHYLPREDNISOLONE SODIUM SUCCINATE
     Dosage: 80 MG
     Route: 042
     Dates: start: 20210308, end: 20210308
  13. LOSARTANKALIUM [Concomitant]
     Active Substance: LOSARTAN
     Dosage: UNK
     Dates: start: 20131122
  14. TOZINAMERAN. [Concomitant]
     Active Substance: TOZINAMERAN
     Indication: PROPHYLAXIS
     Dosage: UNK
     Dates: start: 20210223, end: 20210223
  15. EPCORITAMAB. [Suspect]
     Active Substance: EPCORITAMAB
     Indication: B-CELL LYMPHOMA STAGE IV
     Dosage: PRIMING DOSE: 0.16 MG, SINGLE, CONCENTRATE FOR SOLUTION FOR INJECTION
     Route: 058
     Dates: start: 20210308, end: 20210308
  16. RITUXIMAB. [Concomitant]
     Active Substance: RITUXIMAB
     Indication: B-CELL LYMPHOMA STAGE IV
     Dosage: 750 MG, SINGLE
     Route: 042
     Dates: start: 20210308, end: 20210308
  17. BENDAMUSTINE [Concomitant]
     Active Substance: BENDAMUSTINE
     Indication: B-CELL LYMPHOMA STAGE IV
     Dosage: 180 MG, SINGLE, POWDER FOR CONCENTRATE FOR SOLUTION FOR INFUSION
     Route: 042
     Dates: start: 20210308, end: 20210308
  18. BENDAMUSTINE [Concomitant]
     Active Substance: BENDAMUSTINE
     Dosage: 180 MG, SINGLE, POWDER FOR CONCENTRATE FOR SOLUTION FOR INFUSION
     Route: 042
     Dates: start: 20210309, end: 20210309
  19. TAVEGYL [Concomitant]
     Active Substance: CLEMASTINE FUMARATE
     Dosage: UNK
     Route: 048
     Dates: start: 20210308, end: 20210308
  20. PARACETAMOL [Concomitant]
     Active Substance: ACETAMINOPHEN
     Dosage: 1000 MG
     Route: 048
     Dates: start: 20210322, end: 20210322
  21. PARACETAMOL [Concomitant]
     Active Substance: ACETAMINOPHEN
     Dosage: UNK
     Dates: start: 20210308
  22. SOLU?MEDROL [Concomitant]
     Active Substance: METHYLPREDNISOLONE SODIUM SUCCINATE
     Dosage: 80 MG
     Route: 042
     Dates: start: 20210315, end: 20210315
  23. ACICLODAN [Concomitant]
     Dosage: UNK
     Dates: start: 20210308
  24. CIPROFLOXACIN. [Concomitant]
     Active Substance: CIPROFLOXACIN
     Dosage: UNK
     Dates: start: 20210301, end: 20210315
  25. FURIX [CEFUROXIME] [Concomitant]
     Active Substance: CEFUROXIME
     Dosage: UNK
     Dates: start: 20210308
  26. EPCORITAMAB. [Suspect]
     Active Substance: EPCORITAMAB
     Dosage: INTERMEDIATE DOSE: 0.8 MG, SINGLE, CONCENTRATE FOR SOLUTION FOR INJECTION
     Route: 058
     Dates: start: 20210315, end: 20210315
  27. SOLU?MEDROL [Concomitant]
     Active Substance: METHYLPREDNISOLONE SODIUM SUCCINATE
     Dosage: 80 MG
     Route: 042
     Dates: start: 20210322, end: 20210322
  28. KALIUMKLORID [Concomitant]
     Dosage: UNK
     Dates: start: 20210308

REACTIONS (1)
  - Cytokine release syndrome [Recovered/Resolved]

NARRATIVE: CASE EVENT DATE: 20210323
